FAERS Safety Report 7111663 (Version 2)
Quarter: 2013Q1

REPORT INFORMATION
  Report Type: Spontaneous
  Country: NO (occurrence: None)
  Receive Date: 20090902
  Receipt Date: 20130114
  Transmission Date: 20140127
  Serious: Yes (Other)
  Sender: FDA-Public Use
  Company Number: 2009AP000582

PATIENT
  Age: 40 Year
  Sex: Female

DRUGS (5)
  1. CARBAMAZEPINE [Suspect]
     Indication: EPILEPSY
  2. OXCARBAZEPINE (OXCARBAZEPINE) TABLET, 300MG [Suspect]
     Indication: EPILEPSY
  3. PHENOBARTAL (PHENOBARTAL) [Concomitant]
  4. PHENYTOIN [Concomitant]
  5. LAMOTRIGINE (LAMOTRIGINE) [Concomitant]

REACTIONS (3)
  - Drug hypersensitivity [None]
  - Rash [None]
  - Idiosyncratic drug reaction [None]
